FAERS Safety Report 14054697 (Version 1)
Quarter: 2017Q4

REPORT INFORMATION
  Report Type: Spontaneous
  Country: US (occurrence: None)
  Receive Date: 20171006
  Receipt Date: 20171006
  Transmission Date: 20180321
  Serious: Yes (Hospitalization)
  Sender: FDA-Public Use
  Company Number: None

PATIENT
  Age: 65 Year
  Sex: Female
  Weight: 106.1 kg

DRUGS (3)
  1. METFORMIN HYDROCHLORIDE. [Suspect]
     Active Substance: METFORMIN HYDROCHLORIDE
     Dates: end: 20170925
  2. CARBOPLATIN. [Suspect]
     Active Substance: CARBOPLATIN
     Dates: end: 20170914
  3. TAXOL [Suspect]
     Active Substance: PACLITAXEL
     Dates: end: 20170914

REACTIONS (5)
  - Tooth infection [None]
  - Blood culture positive [None]
  - Swelling face [None]
  - Bacteraemia [None]
  - Asthenia [None]

NARRATIVE: CASE EVENT DATE: 20170926
